FAERS Safety Report 5232205-4 (Version None)
Quarter: 2007Q1

REPORT INFORMATION
  Report Type: 
  Country: None (occurrence: None)
  Receive Date: 20070205
  Receipt Date: 20070125
  Transmission Date: 20070707
  Serious: Yes (Death)
  Sender: FDA-Public Use
  Company Number: 430007M07USA

PATIENT
  Age: 52 Year
  Sex: Female
  Weight: 61.2356 kg

DRUGS (1)
  1. NOVANTRONE [Suspect]
     Indication: MULTIPLE SCLEROSIS
     Dates: start: 20031203, end: 20041101

REACTIONS (9)
  - ACUTE MYELOID LEUKAEMIA [None]
  - DIARRHOEA [None]
  - HAEMOPTYSIS [None]
  - HAEMORRHAGE [None]
  - INCOHERENT [None]
  - NAUSEA [None]
  - PLATELET COUNT DECREASED [None]
  - PUPIL FIXED [None]
  - VOMITING [None]
